FAERS Safety Report 5098238-6 (Version None)
Quarter: 2006Q3

REPORT INFORMATION
  Report Type: 
  Country: None (occurrence: None)
  Receive Date: 20060906
  Receipt Date: 20060608
  Transmission Date: 20061208
  Serious: No
  Sender: FDA-Public Use
  Company Number: US-GLAXOSMITHKLINE-A0608374A

PATIENT
  Age: 55 Year
  Sex: Male
  Weight: 81.8 kg

DRUGS (5)
  1. REQUIP [Suspect]
     Indication: RESTLESS LEGS SYNDROME
     Dosage: 1MG PER DAY
     Route: 048
     Dates: start: 20060504, end: 20060508
  2. SPIRIVA [Concomitant]
  3. AEROBID [Concomitant]
  4. XANAX [Concomitant]
  5. LORTAB [Concomitant]

REACTIONS (1)
  - OEDEMA PERIPHERAL [None]
